FAERS Safety Report 7987517-8 (Version None)
Quarter: 2011Q4

REPORT INFORMATION
  Report Type: 
  Country: None (occurrence: None)
  Receive Date: 20111216
  Receipt Date: 20111207
  Transmission Date: 20120403
  Serious: Yes (Hospitalization)
  Sender: FDA-Public Use
  Company Number: PHHY2011DE107511

PATIENT
  Sex: Male

DRUGS (4)
  1. STEROIDS [Concomitant]
     Indication: PROPHYLAXIS AGAINST TRANSPLANT REJECTION
     Route: 048
  2. ANGIOTENSIN II ANTAGONISTS [Concomitant]
     Route: 048
  3. MYFORTIC [Suspect]
     Indication: PROPHYLAXIS AGAINST TRANSPLANT REJECTION
     Dosage: 360 MG TWICE DAILY
     Route: 048
     Dates: start: 20110701
  4. DEKRISTOL [Concomitant]
     Route: 048

REACTIONS (3)
  - SYNCOPE [None]
  - VASCULITIS CEREBRAL [None]
  - CEREBRAL DISORDER [None]
